FAERS Safety Report 6128749-3 (Version None)
Quarter: 2009Q1

REPORT INFORMATION
  Report Type: 
  Country: None (occurrence: None)
  Receive Date: 20090319
  Receipt Date: 20081022
  Transmission Date: 20090719
  Serious: Yes (Other)
  Sender: FDA-Public Use
  Company Number: 2009EU001006

PATIENT
  Age: 16 Month
  Sex: Male

DRUGS (3)
  1. TACROLIMUS [Suspect]
     Dosage: /D
  2. COTRIM [Concomitant]
  3. VALACYCLOVIR [Concomitant]
     Dosage: D/

REACTIONS (5)
  - AGRANULOCYTOSIS [None]
  - ANAEMIA HAEMOLYTIC AUTOIMMUNE [None]
  - CYTOMEGALOVIRUS INFECTION [None]
  - HAEMATOTOXICITY [None]
  - THERAPEUTIC RESPONSE DECREASED [None]
